FAERS Safety Report 7019623-9 (Version None)
Quarter: 2010Q3

REPORT INFORMATION
  Report Type: 
  Country: None (occurrence: None)
  Receive Date: 20100928
  Receipt Date: 20100928
  Transmission Date: 20110219
  Serious: Yes (Other)
  Sender: FDA-Public Use
  Company Number: None

PATIENT
  Sex: Female
  Weight: 104.3273 kg

DRUGS (1)
  1. ZOLOFT [Suspect]
     Indication: PANIC ATTACK
     Dosage: 200 MG ONCE DAY ORAL
     Route: 048
     Dates: start: 20100413, end: 20100630

REACTIONS (3)
  - MIDDLE INSOMNIA [None]
  - PANIC ATTACK [None]
  - PRODUCT QUALITY ISSUE [None]
